FAERS Safety Report 8488323-0 (Version None)
Quarter: 2012Q3

REPORT INFORMATION
  Report Type: 
  Country: None (occurrence: None)
  Receive Date: 20120705
  Receipt Date: 20120625
  Transmission Date: 20120928
  Serious: Yes (Other)
  Sender: FDA-Public Use
  Company Number: FR-JNJFOC-20120210895

PATIENT
  Age: 41 Year
  Sex: Female

DRUGS (12)
  1. FOLIC ACID [Concomitant]
  2. AMLODIPINE BESYLATE [Concomitant]
  3. CALCIUM CARBONATE [Concomitant]
  4. IRBESARTAN AND HYDROCHLOROTHIAZIDE [Concomitant]
     Dosage: DOSE REPORTED AS ^150/12.5 MG, 1 DF QPM^
  5. METHOTREXATE [Concomitant]
     Route: 048
     Dates: start: 20020101, end: 20060101
  6. METHOTREXATE [Concomitant]
     Indication: TAKAYASU'S ARTERITIS
     Route: 048
  7. BISOPROLOL FUMARATE [Concomitant]
  8. REMICADE [Suspect]
     Indication: TAKAYASU'S ARTERITIS
     Route: 042
     Dates: start: 20111025, end: 20111222
  9. KARDEGIC [Concomitant]
  10. PREDNISONE TAB [Concomitant]
     Indication: TAKAYASU'S ARTERITIS
  11. VITAMIN D [Concomitant]
  12. DIANE [Concomitant]
     Dosage: DOSE REPORTED AS ^35 1DF APM^

REACTIONS (8)
  - URTICARIA [None]
  - CHEST DISCOMFORT [None]
  - DRUG INTOLERANCE [None]
  - ICHTHYOSIS ACQUIRED [None]
  - ASTHENIA [None]
  - HEADACHE [None]
  - MYALGIA [None]
  - VIRAL INFECTION [None]
